FAERS Safety Report 8617292-5 (Version None)
Quarter: 2012Q3

REPORT INFORMATION
  Report Type: 
  Country: None (occurrence: None)
  Receive Date: 20120823
  Receipt Date: 20120822
  Transmission Date: 20120928
  Serious: Yes (Hospitalization)
  Sender: FDA-Public Use
  Company Number: AU-AMGEN-AUSCT2012045158

PATIENT
  Age: 66 Year
  Sex: Male

DRUGS (10)
  1. ASPIRIN [Concomitant]
  2. SENSIPAR [Suspect]
     Dosage: 60 MG, UNK
     Dates: start: 20120522, end: 20120605
  3. SENSIPAR [Suspect]
     Indication: HYPERPARATHYROIDISM SECONDARY
     Dosage: 30 MG, QD
     Dates: start: 20120508, end: 20120521
  4. SENSIPAR [Suspect]
     Dosage: 90 MG, UNK
     Dates: start: 20120606, end: 20120720
  5. OMEPRAZOLE [Concomitant]
  6. PREDNISONE TAB [Concomitant]
  7. PLACEBO [Suspect]
     Indication: HYPERPARATHYROIDISM SECONDARY
     Dosage: UNK UNK, QD
     Route: 048
     Dates: start: 20120117, end: 20120508
  8. CLOPIDEGREL [Concomitant]
  9. MYCOPHENOLATE MOFETIL (CELLCEPT) [Concomitant]
  10. TACROLIMUS [Concomitant]

REACTIONS (1)
  - ABDOMINAL PAIN [None]
